FAERS Safety Report 4426223-3 (Version None)
Quarter: 2004Q3

REPORT INFORMATION
  Report Type: 
  Country: None (occurrence: None)
  Receive Date: 20040811
  Receipt Date: 20040727
  Transmission Date: 20050211
  Serious: Yes (Other)
  Sender: FDA-Public Use
  Company Number: 2003IM000859

PATIENT
  Age: 63 Year
  Sex: Female
  Weight: 50 kg

DRUGS (3)
  1. INTERFERON GAMMA-1B (INTERFERON GAMMA-1B) [Suspect]
     Indication: OVARIAN CANCER
     Dosage: 100 UG;TIW;SUBCUTANEOUS
     Route: 058
     Dates: start: 20030521, end: 20030724
  2. CARBOPLATIN [Suspect]
     Indication: OVARIAN CANCER
     Dosage: Q3W; INTRAVENOUS
     Route: 042
     Dates: start: 20030521, end: 20030724
  3. PACLITAXEL [Suspect]
     Indication: OVARIAN CANCER
     Dosage: Q3W; INTRAVENOUS
     Route: 042
     Dates: start: 20030521, end: 20030724

REACTIONS (1)
  - FEBRILE NEUTROPENIA [None]
